FAERS Safety Report 9908027 (Version 2)
Quarter: 2014Q1

REPORT INFORMATION
  Report Type: Report from Study
  Country: US (occurrence: US)
  Receive Date: 20140219
  Receipt Date: 20140325
  Transmission Date: 20141002
  Serious: Yes (Other)
  Sender: FDA-Public Use
  Company Number: US-ROCHE-1349751

PATIENT
  Sex: Male

DRUGS (4)
  1. REBETOL [Suspect]
     Indication: CHRONIC HEPATITIS C
     Route: 065
  2. REBETOL [Suspect]
     Route: 065
     Dates: start: 20131113
  3. PEGASYS [Suspect]
     Indication: CHRONIC HEPATITIS C
     Route: 065
     Dates: start: 20131113
  4. BOCEPREVIR [Suspect]
     Indication: CHRONIC HEPATITIS C
     Route: 065
     Dates: start: 20130627, end: 20140210

REACTIONS (8)
  - Haemoglobin decreased [Unknown]
  - Upper limb fracture [Recovering/Resolving]
  - Tooth extraction [Unknown]
  - Hyperkeratosis [Unknown]
  - Dry mouth [Unknown]
  - Pruritus [Unknown]
  - Contusion [Recovering/Resolving]
  - Chest pain [Unknown]
